FAERS Safety Report 25921173 (Version 1)
Quarter: 2025Q4

REPORT INFORMATION
  Report Type: Spontaneous
  Country: US (occurrence: US)
  Receive Date: 20251014
  Receipt Date: 20251014
  Transmission Date: 20260118
  Serious: No
  Sender: SANOFI AVENTIS
  Company Number: US-SA-2025SA299707

PATIENT
  Age: 62 Year
  Sex: Female
  Weight: 88.9 kg

DRUGS (20)
  1. KEVZARA [Suspect]
     Active Substance: SARILUMAB
     Indication: Rheumatoid arthritis
     Dosage: 200 MG, QOW
     Route: 058
     Dates: start: 20250921
  2. MOUNJARO [Concomitant]
     Active Substance: TIRZEPATIDE
     Dosage: UNK
  3. IRON [Concomitant]
     Active Substance: IRON
     Dosage: UNK
  4. MELOXICAM [Concomitant]
     Active Substance: MELOXICAM
     Dosage: UNK
  5. VASCEPA [Concomitant]
     Active Substance: ICOSAPENT ETHYL
     Dosage: UNK
  6. XYZAL [Concomitant]
     Active Substance: LEVOCETIRIZINE DIHYDROCHLORIDE
     Dosage: UNK
  7. CLONIDINE HYDROCHLORIDE [Concomitant]
     Active Substance: CLONIDINE HYDROCHLORIDE
     Dosage: UNK
  8. OMEPRAZOLE [Concomitant]
     Active Substance: OMEPRAZOLE
     Dosage: UNK
  9. LIDOCAINE [Concomitant]
     Active Substance: LIDOCAINE
     Dosage: UNK
  10. CYCLOBENZAPRINE HYDROCHLORIDE [Concomitant]
     Active Substance: CYCLOBENZAPRINE HYDROCHLORIDE
     Dosage: UNK
  11. ONDANSETRON HYDROCHLORIDE [Concomitant]
     Active Substance: ONDANSETRON HYDROCHLORIDE
     Dosage: UNK
  12. ALBUTEROL SULFATE [Concomitant]
     Active Substance: ALBUTEROL SULFATE
     Dosage: UNK
  13. SPIRIVA [Concomitant]
     Active Substance: TIOTROPIUM BROMIDE MONOHYDRATE
     Dosage: UNK
  14. FARXIGA [Concomitant]
     Active Substance: DAPAGLIFLOZIN PROPANEDIOL
     Dosage: UNK
  15. DICYCLOMINE HYDROCHLORIDE [Concomitant]
     Active Substance: DICYCLOMINE HYDROCHLORIDE
     Dosage: UNK
  16. XANAX [Concomitant]
     Active Substance: ALPRAZOLAM
     Dosage: UNK
  17. IBUPROFEN [Concomitant]
     Active Substance: IBUPROFEN
     Dosage: UNK
  18. .ALPHA.-TOCOPHEROL [Concomitant]
     Active Substance: .ALPHA.-TOCOPHEROL
     Dosage: UNK
  19. VITAMIN B12 [Concomitant]
     Active Substance: CYANOCOBALAMIN
     Dosage: UNK
  20. ONDANSETRON HYDROCHLORIDE [Concomitant]
     Active Substance: ONDANSETRON HYDROCHLORIDE
     Dosage: UNK

REACTIONS (3)
  - Pain [Not Recovered/Not Resolved]
  - Sinus disorder [Not Recovered/Not Resolved]
  - Rhinorrhoea [Not Recovered/Not Resolved]

NARRATIVE: CASE EVENT DATE: 20250922
